FAERS Safety Report 7064440-7 (Version None)
Quarter: 2010Q4

REPORT INFORMATION
  Report Type: 
  Country: None (occurrence: None)
  Receive Date: 20101027
  Receipt Date: 20101018
  Transmission Date: 20110411
  Serious: Yes (Other)
  Sender: FDA-Public Use
  Company Number: PHHY2010CN04895

PATIENT
  Age: 32 Year
  Sex: Female

DRUGS (1)
  1. PARLODEL [Suspect]
     Indication: HYPERPROLACTINAEMIA
     Dosage: DAILY 1/4-1 TABLET
     Route: 048
     Dates: start: 20091216, end: 20100101

REACTIONS (5)
  - CAESAREAN SECTION [None]
  - DRUG EXPOSURE DURING PREGNANCY [None]
  - NORMAL NEWBORN [None]
  - POLYHYDRAMNIOS [None]
  - PREGNANCY [None]
